FAERS Safety Report 10093130 (Version 1)
Quarter: 2014Q2

REPORT INFORMATION
  Report Type: Spontaneous
  Country: US (occurrence: US)
  Receive Date: 20140421
  Receipt Date: 20140421
  Transmission Date: 20141212
  Serious: No
  Sender: FDA-Public Use
  Company Number: US-SA-2013SA106511

PATIENT
  Age: 66 Year
  Sex: Female
  Weight: 72 kg

DRUGS (5)
  1. ALLEGRA [Suspect]
     Indication: HYPERSENSITIVITY
     Route: 048
     Dates: start: 20130918
  2. PREMARIN [Concomitant]
     Route: 065
     Dates: start: 1989
  3. CLARITIN [Concomitant]
     Indication: HYPERSENSITIVITY
     Route: 065
  4. DRISTAN [Concomitant]
  5. ADVIL COLD + SINUS [Concomitant]

REACTIONS (4)
  - Mood altered [Recovered/Resolved]
  - Condition aggravated [Recovered/Resolved]
  - Agitation [Recovered/Resolved]
  - Drug ineffective [Unknown]
